APPROVED DRUG PRODUCT: ATROPINE SULFATE
Active Ingredient: ATROPINE SULFATE
Strength: 1MG/ML (1MG/ML)
Dosage Form/Route: SOLUTION;INTRAVENOUS
Application: N214652 | Product #002 | TE Code: AP
Applicant: ACCORD HEALTHCARE INC
Approved: Sep 29, 2020 | RLD: Yes | RS: No | Type: RX